FAERS Safety Report 14413783 (Version 1)
Quarter: 2018Q1

REPORT INFORMATION
  Report Type: Spontaneous
  Country: ES (occurrence: ES)
  Receive Date: 20180119
  Receipt Date: 20180119
  Transmission Date: 20180509
  Serious: Yes (Hospitalization, Other)
  Sender: FDA-Public Use
  Company Number: ES-GILEAD-2018-0316534

PATIENT
  Age: 52 Year
  Sex: Male

DRUGS (8)
  1. AMBISOME [Concomitant]
     Active Substance: AMPHOTERICIN B
     Indication: CUTANEOUS LEISHMANIASIS
     Dosage: UNK
     Route: 065
     Dates: start: 201411
  2. AMBISOME [Concomitant]
     Active Substance: AMPHOTERICIN B
     Indication: PROPHYLAXIS
     Dosage: UNK, Q1MONTH
  3. AMBISOME [Concomitant]
     Active Substance: AMPHOTERICIN B
     Dosage: UNK
     Dates: start: 201706
  4. AMBISOME [Concomitant]
     Active Substance: AMPHOTERICIN B
     Indication: VISCERAL LEISHMANIASIS
     Dosage: UNK
     Route: 065
     Dates: start: 201504
  5. RALTEGRAVIR. [Concomitant]
     Active Substance: RALTEGRAVIR
     Indication: HIV INFECTION
  6. HARVONI [Suspect]
     Active Substance: LEDIPASVIR\SOFOSBUVIR
     Indication: HEPATITIS C
     Dosage: UNK
     Route: 065
     Dates: start: 201602
  7. ABACAVIR SULFATE + LAMIVUDINE [Concomitant]
     Active Substance: ABACAVIR SULFATE\LAMIVUDINE
     Indication: HIV INFECTION
  8. ALLOPURINOL. [Concomitant]
     Active Substance: ALLOPURINOL
     Indication: LEISHMANIASIS
     Dosage: 300 MG, QD

REACTIONS (2)
  - Leishmaniasis [Unknown]
  - Renal failure [Unknown]

NARRATIVE: CASE EVENT DATE: 201605
